FAERS Safety Report 8424271-X (Version None)
Quarter: 2012Q2

REPORT INFORMATION
  Report Type: 
  Country: None (occurrence: None)
  Receive Date: 20120608
  Receipt Date: 20111122
  Transmission Date: 20120825
  Serious: No
  Sender: FDA-Public Use
  Company Number: US-ASTRAZENECA-2011SE71310

PATIENT
  Age: 2 Year
  Sex: Female

DRUGS (2)
  1. PULMICORT [Suspect]
     Route: 055
  2. ALBUTEROL [Concomitant]

REACTIONS (5)
  - MALAISE [None]
  - COUGH [None]
  - ASTHMA [None]
  - RHINORRHOEA [None]
  - WHEEZING [None]
